FAERS Safety Report 5047090-3 (Version None)
Quarter: 2006Q3

REPORT INFORMATION
  Report Type: 
  Country: None (occurrence: None)
  Receive Date: 20060710
  Receipt Date: 20060705
  Transmission Date: 20061208
  Serious: Yes (Hospitalization)
  Sender: FDA-Public Use
  Company Number: US-BOEHRINGER INGELHEIM PHARMACEUTICALS, INC.-2006-BP-07622BP

PATIENT
  Sex: Male
  Weight: 21.82 kg

DRUGS (3)
  1. CATAPRES [Suspect]
     Route: 048
     Dates: start: 20060503, end: 20060503
  2. CLARITIN [Concomitant]
     Indication: SEASONAL ALLERGY
  3. MODAFINIL [Concomitant]
     Indication: ATTENTION DEFICIT/HYPERACTIVITY DISORDER
     Route: 048
     Dates: start: 20051222

REACTIONS (4)
  - ACCIDENTAL EXPOSURE [None]
  - BRADYCARDIA [None]
  - HYPOTENSION [None]
  - LETHARGY [None]
